FAERS Safety Report 5339473-9 (Version None)
Quarter: 2007Q2

REPORT INFORMATION
  Report Type: 
  Country: None (occurrence: None)
  Receive Date: 20070525
  Receipt Date: 20070514
  Transmission Date: 20071010
  Serious: Yes (Hospitalization)
  Sender: FDA-Public Use
  Company Number: CIP07000921

PATIENT
  Age: 86 Year
  Sex: Female

DRUGS (6)
  1. RISEDRONATE SODIUM [Suspect]
     Indication: OSTEOPOROSIS
     Dosage: 2.5 MG DAILY, ORAL
     Route: 048
     Dates: start: 20030424, end: 20070509
  2. ALFAROL (ALFACALCIDOL) [Concomitant]
  3. VOLTAREN  /00372301/ (DICLOFENAC) [Concomitant]
  4. MYONAL /00287502/ (EPIRIZOLE HYDROCHLORIDE) [Concomitant]
  5. MUCOSTA (REBAMIPIDE) [Concomitant]
  6. MOHRUS (KETOPROFEN) [Concomitant]

REACTIONS (5)
  - OSTEOMYELITIS ACUTE [None]
  - POOR PERSONAL HYGIENE [None]
  - PURULENT DISCHARGE [None]
  - SWELLING FACE [None]
  - TRISMUS [None]
